FAERS Safety Report 6220345-2 (Version None)
Quarter: 2009Q2

REPORT INFORMATION
  Report Type: 
  Country: None (occurrence: None)
  Receive Date: 20090610
  Receipt Date: 20090528
  Transmission Date: 20091009
  Serious: Yes (Other)
  Sender: FDA-Public Use
  Company Number: US-PFIZER INC-2005082037

PATIENT
  Sex: Female
  Weight: 50 kg

DRUGS (10)
  1. PROVERA [Suspect]
     Indication: HORMONE REPLACEMENT THERAPY
     Dosage: UNK
     Route: 048
     Dates: start: 19670101, end: 20010101
  2. PREMARIN [Suspect]
     Indication: HORMONE REPLACEMENT THERAPY
     Dosage: UNK
     Dates: start: 19670101, end: 20010101
  3. PREMPRO [Suspect]
     Indication: HORMONE REPLACEMENT THERAPY
  4. PREMPHASE 14/14 [Suspect]
     Indication: HORMONE REPLACEMENT THERAPY
  5. PROTONIX [Concomitant]
     Indication: ABDOMINAL DISCOMFORT
     Dosage: UNK
     Dates: start: 19910101
  6. ACTONEL [Concomitant]
     Indication: OSTEOPOROSIS
     Dosage: 30 MG, UNK
     Dates: start: 19910101
  7. ELAVIL [Concomitant]
     Indication: HEADACHE
     Dosage: 20 MG, UNK
     Dates: start: 19910101
  8. LESCOL [Concomitant]
     Indication: PROPHYLAXIS
     Dosage: 80 MG, UNK
     Dates: start: 19910101
  9. LESCOL [Concomitant]
     Indication: HEART RATE INCREASED
  10. DOXEPIN [Concomitant]
     Indication: ABDOMINAL DISCOMFORT
     Dosage: 25 MG, UNK
     Dates: start: 19910101

REACTIONS (1)
  - BREAST CANCER FEMALE [None]
